FAERS Safety Report 5078359-4 (Version None)
Quarter: 2006Q3

REPORT INFORMATION
  Report Type: 
  Country: None (occurrence: None)
  Receive Date: 20060811
  Receipt Date: 20060810
  Transmission Date: 20061208
  Serious: Yes (Congenital Anomaly)
  Sender: FDA-Public Use
  Company Number: US-GLAXOSMITHKLINE-A0616218A

PATIENT
  Sex: Female
  Weight: 2.8 kg

DRUGS (4)
  1. EPZICOM [Suspect]
     Indication: HIV INFECTION
     Dosage: 1TAB PER DAY
  2. ZIDOVUDINE [Suspect]
     Indication: HIV INFECTION
     Dosage: 2000MG PER DAY
     Dates: start: 20060419, end: 20060419
  3. ATAZANAVIR [Concomitant]
     Indication: HIV INFECTION
     Dosage: 300MG PER DAY
  4. RITONAVIR [Concomitant]
     Indication: HIV INFECTION
     Dosage: 100MG PER DAY

REACTIONS (4)
  - DRUG EXPOSURE DURING PREGNANCY [None]
  - KARYOTYPE ANALYSIS ABNORMAL [None]
  - MATERNAL CONDITION AFFECTING FOETUS [None]
  - TRISOMY 21 [None]
